FAERS Safety Report 8793481 (Version 2)
Quarter: 2012Q4

REPORT INFORMATION
  Report Type: 
  Country: DE (occurrence: DE)
  Receive Date: 20120917
  Receipt Date: 20120924
  Transmission Date: 20130627
  Serious: Yes (Other)
  Sender: FDA-Public Use
  Company Number: DE-ASTRAZENECA-2012SE70606

PATIENT
  Age: 45 Year
  Sex: Female
  Weight: 80 kg

DRUGS (1)
  1. CARBOSTESIN [Suspect]
     Indication: ANAESTHESIA
     Dosage: 5 MG/ML, 4-4.5 ml Once/Single administration
     Route: 065
     Dates: start: 20120906

REACTIONS (2)
  - Paraesthesia oral [Recovered/Resolved]
  - Nerve injury [Recovered/Resolved]
